FAERS Safety Report 7874839-4 (Version None)
Quarter: 2011Q4

REPORT INFORMATION
  Report Type: 
  Country: None (occurrence: None)
  Receive Date: 20111031
  Receipt Date: 20111025
  Transmission Date: 20120403
  Serious: Yes (Hospitalization)
  Sender: FDA-Public Use
  Company Number: AU-JNJFOC-20111011283

PATIENT
  Sex: Male
  Weight: 83 kg

DRUGS (2)
  1. ABIRATERONE ACETATE [Suspect]
     Indication: PROSTATE CANCER METASTATIC
     Dosage: MED KIT NUMBER: 04058
     Route: 048
     Dates: start: 20110902
  2. ABIRATERONE ACETATE [Suspect]
     Route: 048

REACTIONS (2)
  - BONE PAIN [None]
  - PYREXIA [None]
